FAERS Safety Report 25702330 (Version 2)
Quarter: 2025Q3

REPORT INFORMATION
  Report Type: Report from Study
  Country: BR (occurrence: BR)
  Receive Date: 20250819
  Receipt Date: 20250904
  Transmission Date: 20251021
  Serious: Yes (Other)
  Sender: BIOGEN
  Company Number: BR-BIOGEN-2025BI01320455

PATIENT
  Age: 44 Year
  Sex: Male

DRUGS (1)
  1. TYSABRI [Suspect]
     Active Substance: NATALIZUMAB
     Indication: Relapsing-remitting multiple sclerosis
     Route: 050
     Dates: start: 2018

REACTIONS (6)
  - Intervertebral disc degeneration [Unknown]
  - Spinal cord haemorrhage [Unknown]
  - Multiple sclerosis [Unknown]
  - Spinal retrolisthesis [Unknown]
  - Intervertebral disc protrusion [Unknown]
  - Thecal sac compression [Unknown]

NARRATIVE: CASE EVENT DATE: 20231101
